FAERS Safety Report 6888579-1 (Version None)
Quarter: 2010Q3

REPORT INFORMATION
  Report Type: 
  Country: None (occurrence: None)
  Receive Date: 20100730
  Receipt Date: 20061026
  Transmission Date: 20110219
  Serious: No
  Sender: FDA-Public Use
  Company Number: US-PFIZER INC-2006133265

PATIENT
  Sex: Female
  Weight: 97.07 kg

DRUGS (1)
  1. SINEQUAN [Suspect]
     Indication: NERVOUS SYSTEM DISORDER
     Dates: start: 19870101

REACTIONS (3)
  - INSOMNIA [None]
  - PRURITUS [None]
  - SCRATCH [None]
